FAERS Safety Report 16498978 (Version 1)
Quarter: 2019Q2

REPORT INFORMATION
  Report Type: Spontaneous
  Country: US (occurrence: US)
  Receive Date: 20190630
  Receipt Date: 20190630
  Transmission Date: 20190711
  Serious: No
  Sender: FDA-Public Use
  Company Number: US-TEVA-2019-US-1064284

PATIENT
  Age: 50 Year
  Sex: Female

DRUGS (4)
  1. CROMOLYN [Concomitant]
     Active Substance: CROMOLYN
     Indication: MAST CELL ACTIVATION SYNDROME
     Route: 048
  2. RANITIDINE. [Concomitant]
     Active Substance: RANITIDINE
     Indication: MAST CELL ACTIVATION SYNDROME
     Route: 065
  3. CARBAMAZEPINE. [Suspect]
     Active Substance: CARBAMAZEPINE
     Dosage: CONTAINING THE EXCIPIENT SODIUM LAURIL SULFATE
     Route: 065
  4. CETIRIZINE [Concomitant]
     Active Substance: CETIRIZINE HYDROCHLORIDE
     Indication: MAST CELL ACTIVATION SYNDROME
     Route: 065

REACTIONS (5)
  - Product substitution issue [Unknown]
  - Malaise [Recovered/Resolved]
  - Rash [Recovered/Resolved]
  - Gastrointestinal disorder [Recovered/Resolved]
  - Reaction to excipient [Recovered/Resolved]
